FAERS Safety Report 9477833 (Version 1)
Quarter: 2013Q3

REPORT INFORMATION
  Report Type: Spontaneous
  Country: US (occurrence: US)
  Receive Date: 20130827
  Receipt Date: 20130827
  Transmission Date: 20140515
  Serious: No
  Sender: FDA-Public Use
  Company Number: US-009507513-1308USA001675

PATIENT
  Age: 19 Year
  Sex: Female
  Weight: 81.63 kg

DRUGS (3)
  1. NEXPLANON [Suspect]
     Indication: CONTRACEPTION
     Dosage: 1 ROD, THREE YEARS THERAPY
     Route: 059
     Dates: start: 20130610
  2. TYLENOL [Concomitant]
     Indication: PAIN
  3. CLARITINE [Concomitant]

REACTIONS (2)
  - Menorrhagia [Unknown]
  - Inappropriate schedule of drug administration [Unknown]
